FAERS Safety Report 8165073-1 (Version None)
Quarter: 2012Q1

REPORT INFORMATION
  Report Type: 
  Country: None (occurrence: None)
  Receive Date: 20120227
  Receipt Date: 20120217
  Transmission Date: 20120608
  Serious: No
  Sender: FDA-Public Use
  Company Number: US-BIOGENIDEC-2012BI006558

PATIENT
  Age: 53 Year
  Sex: Female

DRUGS (1)
  1. AVONEX [Suspect]
     Indication: MULTIPLE SCLEROSIS
     Route: 030
     Dates: start: 20100717, end: 20100731

REACTIONS (6)
  - HEMIPARESIS [None]
  - PAIN [None]
  - COGNITIVE DISORDER [None]
  - GAIT DISTURBANCE [None]
  - MUSCLE ATROPHY [None]
  - MUSCULAR WEAKNESS [None]
